FAERS Safety Report 12590899 (Version 2)
Quarter: 2016Q3

REPORT INFORMATION
  Report Type: Spontaneous
  Country: US (occurrence: US)
  Receive Date: 20160726
  Receipt Date: 20160726
  Transmission Date: 20161109
  Serious: No
  Sender: FDA-Public Use
  Company Number: US-UNITED THERAPEUTICS-UNT-2015-015031

PATIENT
  Age: 1 Year
  Sex: Female
  Weight: 8.39 kg

DRUGS (2)
  1. SILDENAFIL. [Concomitant]
     Active Substance: SILDENAFIL
     Indication: PRODUCT USED FOR UNKNOWN INDICATION
  2. REMODULIN [Suspect]
     Active Substance: TREPROSTINIL
     Indication: PULMONARY ARTERIAL HYPERTENSION
     Dosage: 0.053 ?G/KG/MIN, CONTINUING
     Route: 058
     Dates: start: 20151117

REACTIONS (5)
  - Infusion site discharge [Unknown]
  - Infusion site oedema [Recovered/Resolved]
  - Infusion site erythema [Unknown]
  - Infusion site induration [Unknown]
  - Infusion site infection [Unknown]

NARRATIVE: CASE EVENT DATE: 201511
